FAERS Safety Report 4566617-9 (Version None)
Quarter: 2005Q1

REPORT INFORMATION
  Report Type: 
  Country: None (occurrence: None)
  Receive Date: 20050201
  Receipt Date: 20040816
  Transmission Date: 20050727
  Serious: Yes (Hospitalization, Other)
  Sender: FDA-Public Use
  Company Number: A0541269A

PATIENT
  Age: 76 Year
  Sex: Male
  Weight: 62.1 kg

DRUGS (5)
  1. CITRUCEL CLEAR MIX [Suspect]
     Indication: MEDICAL DIET
     Route: 048
     Dates: start: 20020101
  2. ZOLOFT [Concomitant]
     Indication: DEPRESSION
     Route: 048
  3. ASPIRIN [Concomitant]
     Indication: ANALGESIC INTERVENTION SUPPORTIVE THERAPY
     Route: 048
  4. VITAMIN E [Concomitant]
  5. CALCIUM/MAGNESIUM/ZINC [Concomitant]
     Indication: MINERAL DEFICIENCY

REACTIONS (16)
  - ABDOMINAL DISTENSION [None]
  - ASTHENIA [None]
  - CHEST PAIN [None]
  - CORONARY ARTERY OCCLUSION [None]
  - DYSPEPSIA [None]
  - ERUCTATION [None]
  - FEELING COLD [None]
  - FEELING HOT [None]
  - FEELING HOT AND COLD [None]
  - FLATULENCE [None]
  - GASTROOESOPHAGEAL REFLUX DISEASE [None]
  - HYPERCHLORHYDRIA [None]
  - HYPERHIDROSIS [None]
  - MYOCARDIAL INFARCTION [None]
  - RESTLESSNESS [None]
  - WEIGHT DECREASED [None]
